FAERS Safety Report 17587065 (Version 2)
Quarter: 2020Q2

REPORT INFORMATION
  Report Type: Spontaneous
  Country: SE (occurrence: SE)
  Receive Date: 20200326
  Receipt Date: 20200401
  Transmission Date: 20200713
  Serious: Yes (Other)
  Sender: FDA-Public Use
  Company Number: SE-CELGENEUS-SWE-20200203464

PATIENT
  Age: 70 Year
  Sex: Male

DRUGS (13)
  1. OTEZLA [Suspect]
     Active Substance: APREMILAST
     Indication: PSORIASIS
     Dosage: 60 MILLIGRAM
     Route: 048
     Dates: start: 201603
  2. TERBINAFIN [Concomitant]
     Active Substance: TERBINAFINE
     Indication: ACTINIC KERATOSIS
     Dosage: 250 MILLIGRAM
     Route: 065
  3. DIMOR [Concomitant]
     Active Substance: LOPERAMIDE
     Indication: PSORIASIS
     Route: 065
  4. AMLODIPINE [Concomitant]
     Active Substance: AMLODIPINE BESYLATE
     Indication: PRODUCT USED FOR UNKNOWN INDICATION
     Route: 065
  5. OVIXAN [Concomitant]
     Indication: PSORIASIS
     Route: 065
  6. ADRENALINE [Concomitant]
     Active Substance: EPINEPHRINE
     Indication: LOCAL ANAESTHESIA
     Route: 065
  7. DAIVOBET [Concomitant]
     Active Substance: BETAMETHASONE DIPROPIONATE\CALCIPOTRIENE
     Indication: PSORIASIS
     Route: 065
  8. PROPYDERM [Concomitant]
     Indication: PSORIASIS
     Route: 065
  9. XYLOCAINE [Concomitant]
     Active Substance: LIDOCAINE HYDROCHLORIDE
     Indication: ANAESTHESIA
     Route: 065
  10. DIPROLENE [Concomitant]
     Active Substance: BETAMETHASONE DIPROPIONATE
     Indication: SQUAMOUS CELL CARCINOMA
     Route: 065
  11. FERRIC CHLORIDE [Concomitant]
     Active Substance: FERRIC CHLORIDE
     Indication: HAEMOSTASIS
     Route: 065
  12. FURIX [Concomitant]
     Indication: PRODUCT USED FOR UNKNOWN INDICATION
     Route: 065
  13. CANDESARTAN. [Concomitant]
     Active Substance: CANDESARTAN
     Indication: PRODUCT USED FOR UNKNOWN INDICATION
     Route: 065

REACTIONS (14)
  - Basal cell carcinoma [Unknown]
  - Squamous cell carcinoma [Unknown]
  - Actinic keratosis [Unknown]
  - Actinic keratosis [Unknown]
  - Squamous cell carcinoma [Unknown]
  - Actinic keratosis [Unknown]
  - Squamous cell carcinoma [Unknown]
  - Squamous cell carcinoma [Unknown]
  - Actinic keratosis [Unknown]
  - Squamous cell carcinoma [Unknown]
  - Squamous cell carcinoma [Unknown]
  - Actinic keratosis [Unknown]
  - Basal cell carcinoma [Unknown]
  - Actinic keratosis [Unknown]

NARRATIVE: CASE EVENT DATE: 201603
